FAERS Safety Report 8293868-2 (Version None)
Quarter: 2012Q2

REPORT INFORMATION
  Report Type: 
  Country: None (occurrence: None)
  Receive Date: 20120413
  Receipt Date: 20120402
  Transmission Date: 20120825
  Serious: Yes (Other)
  Sender: FDA-Public Use
  Company Number: AUR-APL-2012-01750

PATIENT
  Age: 54 Year
  Sex: Female

DRUGS (20)
  1. ZINC (ZINC) [Concomitant]
  2. HYDROMORPHONE HCL [Concomitant]
  3. ALPRAZOLAM [Concomitant]
  4. MULTIVITAMIN (VIGRAN) [Concomitant]
  5. MAGNESIUM (MAGNESIUM) [Concomitant]
  6. SAVELLA [Concomitant]
  7. MORPHINE [Concomitant]
  8. TEMAZEPAM [Concomitant]
  9. AMLODIPINE [Suspect]
     Indication: PRODUCT USED FOR UNKNOWN INDICATION
     Dosage: (2.5 MG,1 D)
     Dates: start: 20120223
  10. SUTENT [Suspect]
     Indication: METASTATIC RENAL CELL CARCINOMA
     Dosage: 50 MG (50 MG,DAILY FOR 4 WEEKS AND 2 WEEKS OFF),ORAL ; (37.5 MG,1 D),ORAL
     Route: 048
     Dates: start: 20120308
  11. SUTENT [Suspect]
     Indication: METASTATIC RENAL CELL CARCINOMA
     Dosage: 50 MG (50 MG,DAILY FOR 4 WEEKS AND 2 WEEKS OFF),ORAL ; (37.5 MG,1 D),ORAL
     Route: 048
     Dates: start: 20120131, end: 20120220
  12. METOPROLOL TARTRATE [Suspect]
     Indication: PRODUCT USED FOR UNKNOWN INDICATION
     Dosage: 50 MG (25 MG,2 IN 1 D)
     Dates: start: 20120217, end: 20120223
  13. VITAMIN B COMPLEX (B-KOMPLEX) [Concomitant]
  14. NEXIUM [Concomitant]
  15. FLUVOXAMINE MALEATE [Concomitant]
  16. GABAPENTIN [Concomitant]
  17. TRAZODONE HCL [Concomitant]
  18. FISH OIL (FISH OIL) [Concomitant]
  19. LISINOPRIL [Suspect]
     Indication: PRODUCT USED FOR UNKNOWN INDICATION
     Dosage: (10 MG,1 D)
     Dates: start: 20120208, end: 20120217
  20. OMEGA 3 (LIPITAC) [Concomitant]

REACTIONS (2)
  - HYPERTENSION [None]
  - HYPOTENSION [None]
